FAERS Safety Report 14107540 (Version 1)
Quarter: 2017Q4

REPORT INFORMATION
  Report Type: Report from Study
  Country: US (occurrence: US)
  Receive Date: 20171019
  Receipt Date: 20171019
  Transmission Date: 20180321
  Serious: Yes (Hospitalization)
  Sender: FDA-Public Use
  Company Number: US-TEVA-816113USA

PATIENT
  Age: 76 Year
  Sex: Male
  Weight: 82.08 kg

DRUGS (6)
  1. CISPLATIN. [Suspect]
     Active Substance: CISPLATIN
     Indication: SQUAMOUS CELL CARCINOMA OF HEAD AND NECK
     Dosage: DAYS 1, 22, AND 43 OF CRT PHASE, IV DRIP
     Route: 042
     Dates: start: 20170829
  2. MAGNESIUM OXIDE. [Concomitant]
     Active Substance: MAGNESIUM OXIDE
     Dates: start: 20170815
  3. MSB0010718C;PLACEBO (CODE NOT BROKEN) (AVELUMAB OR PLACEBO) [Suspect]
     Active Substance: AVELUMAB
     Indication: SQUAMOUS CELL CARCINOMA OF HEAD AND NECK
     Dosage: BLINDED, INFORMATION WITHHELD
     Route: 042
     Dates: start: 20170822
  4. ONDANSETRON [Concomitant]
     Active Substance: ONDANSETRON
     Dates: start: 20170808
  5. ASPIRIN. [Concomitant]
     Active Substance: ASPIRIN
     Dates: start: 20170815
  6. DEXAMETHASONE. [Concomitant]
     Active Substance: DEXAMETHASONE
     Dates: start: 20170831

REACTIONS (2)
  - Bradycardia [Recovered/Resolved]
  - Dizziness [None]

NARRATIVE: CASE EVENT DATE: 20170901
